FAERS Safety Report 6918526-5 (Version None)
Quarter: 2010Q3

REPORT INFORMATION
  Report Type: 
  Country: None (occurrence: None)
  Receive Date: 20100722
  Receipt Date: 20100322
  Transmission Date: 20110219
  Serious: Yes (Hospitalization)
  Sender: FDA-Public Use
  Company Number: 2010022293

PATIENT
  Sex: Male
  Weight: 42.3206 kg

DRUGS (4)
  1. PRIVIGEN [Suspect]
     Indication: TRANSPLANT REJECTION
     Dosage: (70 G INTRAVENOUS (NOT OTHERWISE SPECIFED)
     Route: 042
     Dates: start: 20100214, end: 20100215
  2. NEORAL [Suspect]
     Indication: RENAL TRANSPLANT
     Dosage: (100 (UNKNOWN UNITS) TWICE PER DAY ORAL)
     Route: 048
     Dates: start: 20080427, end: 20100208
  3. PROGRAF [Concomitant]
  4. STEROID TAPER (CORTICOSTEROID NOS) [Concomitant]

REACTIONS (2)
  - HEADACHE [None]
  - VOMITING [None]
